FAERS Safety Report 8086445-X (Version None)
Quarter: 2012Q1

REPORT INFORMATION
  Report Type: 
  Country: None (occurrence: None)
  Receive Date: 20120128
  Receipt Date: 20110511
  Transmission Date: 20120608
  Serious: No
  Sender: FDA-Public Use
  Company Number: US-ABBOTT-11P-163-0724897-00

PATIENT
  Age: 46 Year
  Sex: Female

DRUGS (3)
  1. MOTRIN [Concomitant]
     Indication: ARTHRALGIA
     Route: 048
  2. HUMIRA [Suspect]
     Indication: PSORIATIC ARTHROPATHY
     Dates: start: 20110201
  3. FLEXERIL [Concomitant]
     Indication: ARTHRALGIA
     Dosage: UP TO 2 TABLETS, AS NEEDED

REACTIONS (2)
  - DRUG INEFFECTIVE [None]
  - ARTHRALGIA [None]
